FAERS Safety Report 9153363 (Version 1)
Quarter: 2013Q1

REPORT INFORMATION
  Report Type: Spontaneous
  Country: DK (occurrence: None)
  Receive Date: 20130204
  Receipt Date: 20130204
  Transmission Date: 20140127
  Serious: Yes (Hospitalization)
  Sender: FDA-Public Use
  Company Number: 2013MA000827

PATIENT
  Age: 66 Year
  Sex: Female
  Weight: 47 kg

DRUGS (4)
  1. GEMCITABINE [Suspect]
     Indication: PANCREATIC NEOPLASM
     Route: 042
     Dates: start: 20121218, end: 20121218
  2. OXALIPLATIN FOR INJECTION [Suspect]
     Indication: PANCREATIC NEOPLASM
     Route: 042
     Dates: start: 20121219, end: 20121219
  3. METOCLOPRAMIDE [Concomitant]
  4. DEXAMETHASONE [Concomitant]

REACTIONS (5)
  - Liver disorder [None]
  - Malaise [None]
  - Pain in extremity [None]
  - Hyperammonaemia [None]
  - Hepatic failure [None]
